FAERS Safety Report 8097281-2 (Version None)
Quarter: 2012Q1

REPORT INFORMATION
  Report Type: 
  Country: None (occurrence: None)
  Receive Date: 20120128
  Receipt Date: 20110705
  Transmission Date: 20120608
  Serious: No
  Sender: FDA-Public Use
  Company Number: US-ABBOTT-11P-163-0835211-00

PATIENT
  Age: 35 Year
  Sex: Female

DRUGS (7)
  1. IBUPROFEN (ADVIL) [Concomitant]
     Indication: PRODUCT USED FOR UNKNOWN INDICATION
  2. INH [Concomitant]
     Indication: TUBERCULOSIS
  3. LOVASTATIN [Concomitant]
     Indication: PRODUCT USED FOR UNKNOWN INDICATION
  4. METOPROLOL TARTRATE [Concomitant]
     Indication: PRODUCT USED FOR UNKNOWN INDICATION
  5. MUSCLE RELAXANT [Concomitant]
     Indication: MUSCLE SPASMS
     Dosage: AT BEDTIME
     Dates: start: 20110628
  6. VITAMIN B6 [Concomitant]
     Indication: PRODUCT USED FOR UNKNOWN INDICATION
     Dosage: DAILY
  7. HUMIRA [Suspect]
     Indication: RHEUMATOID ARTHRITIS
     Dates: start: 20110615

REACTIONS (3)
  - MYALGIA [None]
  - PARAESTHESIA [None]
  - MUSCLE SPASMS [None]
